FAERS Safety Report 21326305 (Version 2)
Quarter: 2022Q3

REPORT INFORMATION
  Report Type: Spontaneous
  Country: CA (occurrence: CA)
  Receive Date: 20220913
  Receipt Date: 20220920
  Transmission Date: 20221026
  Serious: Yes (Death)
  Sender: FDA-Public Use
  Company Number: CA-002147023-NVSC2022CA203171

PATIENT
  Age: 80 Year
  Sex: Male

DRUGS (2)
  1. LUCENTIS [Suspect]
     Active Substance: RANIBIZUMAB
     Indication: Retinal vein occlusion
     Route: 065
     Dates: start: 20220612
  2. LUCENTIS [Suspect]
     Active Substance: RANIBIZUMAB
     Dosage: LAST RANIBIZUMAB INJECTION
     Route: 065
     Dates: start: 20220808

REACTIONS (1)
  - Death [Fatal]

NARRATIVE: CASE EVENT DATE: 20220831
